FAERS Safety Report 18732263 (Version 2)
Quarter: 2021Q1

REPORT INFORMATION
  Report Type: Spontaneous
  Country: US (occurrence: US)
  Receive Date: 20210112
  Receipt Date: 20210209
  Transmission Date: 20210419
  Serious: Yes (Hospitalization, Other)
  Sender: FDA-Public Use
  Company Number: US-TEVA-2021-US-1866809

PATIENT
  Age: 15 Year
  Sex: Male

DRUGS (4)
  1. TOPIRAMATE. [Suspect]
     Active Substance: TOPIRAMATE
     Indication: TOURETTE^S DISORDER
     Dosage: 50 MILLIGRAM DAILY;
     Route: 065
  2. LURASIDONE [Suspect]
     Active Substance: LURASIDONE
     Indication: TIC
     Dosage: 60 MILLIGRAM DAILY;
     Route: 065
  3. GUANFACINE. [Concomitant]
     Active Substance: GUANFACINE
     Indication: IMPULSE-CONTROL DISORDER
     Dosage: 2 MILLIGRAM DAILY;
     Route: 065
  4. DESVENLAFAXINE. [Suspect]
     Active Substance: DESVENLAFAXINE
     Indication: OBSESSIVE-COMPULSIVE DISORDER
     Dosage: 50 MILLIGRAM DAILY;
     Route: 065

REACTIONS (2)
  - Drug ineffective [Unknown]
  - Suicidal ideation [Recovered/Resolved]
